FAERS Safety Report 8218746-6 (Version None)
Quarter: 2012Q1

REPORT INFORMATION
  Report Type: 
  Country: None (occurrence: None)
  Receive Date: 20120319
  Receipt Date: 20120312
  Transmission Date: 20120608
  Serious: Yes (Other)
  Sender: FDA-Public Use
  Company Number: PHEH2011US012463

PATIENT
  Sex: Male
  Weight: 80.272 kg

DRUGS (4)
  1. GILENYA [Suspect]
     Indication: MULTIPLE SCLEROSIS
     Dosage: 0.5 MG, DAILY
     Route: 048
     Dates: start: 20101101, end: 20111120
  2. TOVIAZ [Concomitant]
     Indication: POLLAKIURIA
     Dosage: 8 MG, QD
     Route: 048
  3. GILENYA [Suspect]
     Dosage: 0.5 MG, DAILY
     Route: 048
     Dates: start: 20111219
  4. BACLOFEN [Concomitant]
     Indication: MUSCLE SPASMS
     Dosage: 10 MG, BID PRN
     Route: 048

REACTIONS (3)
  - DIARRHOEA [None]
  - ASTHMA [None]
  - BRONCHITIS [None]
